FAERS Safety Report 9304450 (Version 2)
Quarter: 2013Q3

REPORT INFORMATION
  Report Type: Spontaneous
  Country: US (occurrence: US)
  Receive Date: 20130522
  Receipt Date: 20130712
  Transmission Date: 20140515
  Serious: Yes (Disabling)
  Sender: FDA-Public Use
  Company Number: US-009507513-1305USA011959

PATIENT
  Age: 27 Year
  Sex: Male

DRUGS (2)
  1. SAPHRIS [Suspect]
     Indication: PSYCHIATRIC SYMPTOM
     Dosage: 10 MG TWICE DAILY
     Route: 060
     Dates: start: 201302
  2. CELEXA [Concomitant]

REACTIONS (3)
  - Panic attack [Not Recovered/Not Resolved]
  - Feeling abnormal [Not Recovered/Not Resolved]
  - Hypoaesthesia oral [Not Recovered/Not Resolved]
